FAERS Safety Report 11805204 (Version 2)
Quarter: 2016Q3

REPORT INFORMATION
  Report Type: Spontaneous
  Country: IT (occurrence: IT)
  Receive Date: 20151206
  Receipt Date: 20160720
  Transmission Date: 20161109
  Serious: No
  Sender: FDA-Public Use
  Company Number: IT-MYLANLABS-2015M1043171

PATIENT

DRUGS (3)
  1. BORTEZOMIB [Suspect]
     Active Substance: BORTEZOMIB
     Indication: CRYOGLOBULINAEMIA
     Dosage: 1.3MG/M2 ON DAYS 1, 4, 8 AND 11 EVERY 21 DAYS.
     Route: 058
  2. PREDNISONE. [Concomitant]
     Active Substance: PREDNISONE
     Indication: CRYOGLOBULINAEMIA
     Dosage: 1 MG/KG WITH PROGRESSIVE TAPERING
  3. DEXAMETHASONE. [Suspect]
     Active Substance: DEXAMETHASONE
     Indication: CRYOGLOBULINAEMIA
     Dosage: 40 MG ON DAYS 1-2, 4-5, 8-9 AND11-12 EVERY 21 DAYS
     Route: 042

REACTIONS (3)
  - Off label use [Unknown]
  - Neuralgia [Recovered/Resolved]
  - Diarrhoea [Recovered/Resolved]
